FAERS Safety Report 16023043 (Version 3)
Quarter: 2019Q2

REPORT INFORMATION
  Report Type: Report from Study
  Country: US (occurrence: US)
  Receive Date: 20190301
  Receipt Date: 20190416
  Transmission Date: 20190711
  Serious: Yes (Hospitalization)
  Sender: FDA-Public Use
  Company Number: US-TAIHO ONCOLOGY  INC-EU-2019-00553

PATIENT
  Age: 75 Year
  Sex: Male
  Weight: 59.02 kg

DRUGS (1)
  1. LONSURF [Suspect]
     Active Substance: TIPIRACIL HYDROCHLORIDE\TRIFLURIDINE
     Indication: COLON CANCER
     Dosage: CURRENT CYCLE 2 STARTED ON 07JAN2019, LONSURF RESUMED ON 18/MAR/2019
     Route: 048
     Dates: start: 20190107

REACTIONS (1)
  - Tumour obstruction [Not Recovered/Not Resolved]

NARRATIVE: CASE EVENT DATE: 20190215
